FAERS Safety Report 16459524 (Version 1)
Quarter: 2019Q2

REPORT INFORMATION
  Report Type: Spontaneous
  Country: FI (occurrence: FI)
  Receive Date: 20190620
  Receipt Date: 20190620
  Transmission Date: 20190711
  Serious: Yes (Life-Threatening)
  Sender: FDA-Public Use
  Company Number: FI-ROCHE-2340304

PATIENT
  Age: 69 Year
  Sex: Female

DRUGS (3)
  1. AVASTIN [Suspect]
     Active Substance: BEVACIZUMAB
     Indication: METASTASES TO PERITONEUM
     Dosage: DATE OF MOST RECENT DOSE OF BEVACIZUMAB : 24/APR/2019
     Route: 042
     Dates: start: 20190313
  2. TAXOTERE [Concomitant]
     Active Substance: DOCETAXEL
     Indication: METASTASES TO PERITONEUM
     Route: 042
     Dates: start: 20181017
  3. CARBOPLATIN ACCORD [Concomitant]
     Active Substance: CARBOPLATIN
     Indication: METASTASES TO PERITONEUM
     Route: 042
     Dates: start: 20181017

REACTIONS (4)
  - Enterostomy [Not Recovered/Not Resolved]
  - Intestinal resection [Not Recovered/Not Resolved]
  - Peritonitis [Not Recovered/Not Resolved]
  - Large intestine perforation [Not Recovered/Not Resolved]

NARRATIVE: CASE EVENT DATE: 20190508
